FAERS Safety Report 5118999-7 (Version None)
Quarter: 2006Q3

REPORT INFORMATION
  Report Type: 
  Country: None (occurrence: None)
  Receive Date: 20060927
  Receipt Date: 20060911
  Transmission Date: 20061208
  Serious: Yes (Hospitalization, Other)
  Sender: FDA-Public Use
  Company Number: AU-2006-014507

PATIENT
  Age: 45 Year
  Sex: Male
  Weight: 83.4 kg

DRUGS (6)
  1. FLUDARABINE [Suspect]
     Indication: CHRONIC LYMPHOCYTIC LEUKAEMIA
     Dosage: SEE IMGAE
     Route: 042
     Dates: start: 20060125, end: 20060519
  2. CYCLOPHOSPHAMIDE [Suspect]
     Indication: CHRONIC LYMPHOCYTIC LEUKAEMIA
     Dosage: SEE IMAGE
     Route: 042
     Dates: start: 20060125, end: 20060519
  3. METOCLOPRAMIDE (METOCOPRAMIDE) [Concomitant]
  4. CYCLIZINE (CYCLIZINE) [Concomitant]
  5. DOLASETRON (DOLASETRON) [Concomitant]
  6. PANADENE (CODDEINE PHOSPHATE) [Concomitant]

REACTIONS (1)
  - MIGRAINE [None]
